FAERS Safety Report 5318722-7 (Version None)
Quarter: 2007Q2

REPORT INFORMATION
  Report Type: 
  Country: None (occurrence: None)
  Receive Date: 20070503
  Receipt Date: 20070503
  Transmission Date: 20071010
  Serious: Yes (Hospitalization)
  Sender: FDA-Public Use
  Company Number: None

PATIENT
  Age: 70 Year
  Sex: Female
  Weight: 54 kg

DRUGS (8)
  1. OMEPRAZOLE [Suspect]
     Indication: GASTROOESOPHAGEAL REFLUX DISEASE
     Dosage: 20MG DAILY PO ABOUT 3-4 WEEKS
     Route: 048
  2. ALOSETRON [Suspect]
     Indication: IRRITABLE BOWEL SYNDROME
     Dosage: 1MG DAILY PO ABOUT 3-4 WEEKS
     Route: 048
  3. ATENOLOL [Concomitant]
  4. IRBESARTAN + HYDROCHLOROTHIAZIDE [Concomitant]
  5. TINCTURE OF OPIUM [Concomitant]
  6. ALPRAZOLAM [Concomitant]
  7. ZOLPIDEM [Concomitant]
  8. POTASSIUM CHLORIDE [Concomitant]

REACTIONS (4)
  - CONDITION AGGRAVATED [None]
  - NEUTROPENIA [None]
  - THROMBOCYTOPENIA [None]
  - WHITE BLOOD CELL COUNT DECREASED [None]
